FAERS Safety Report 7588621-9 (Version None)
Quarter: 2011Q3

REPORT INFORMATION
  Report Type: 
  Country: None (occurrence: None)
  Receive Date: 20110705
  Receipt Date: 20110630
  Transmission Date: 20111222
  Serious: Yes (Death, Other)
  Sender: FDA-Public Use
  Company Number: US-BRISTOL-MYERS SQUIBB COMPANY-15849920

PATIENT
  Age: 49 Year
  Sex: Male

DRUGS (14)
  1. DILAUDID [Concomitant]
  2. ATIVAN [Concomitant]
  3. PHENERGAN HCL [Concomitant]
  4. FENTANYL-100 [Concomitant]
  5. PEPCID [Concomitant]
  6. LOVENOX [Suspect]
     Indication: DEEP VEIN THROMBOSIS
     Dates: start: 20110112, end: 20110601
  7. VICODIN [Concomitant]
     Dosage: 1DF: 5/500 UNITS NOS
  8. COLACE [Concomitant]
  9. ZOLOFT [Concomitant]
  10. COMPAZINE [Concomitant]
  11. LOVENOX [Suspect]
     Indication: PULMONARY EMBOLISM
     Dates: start: 20110112, end: 20110601
  12. COUMADIN [Suspect]
     Indication: ATRIAL FIBRILLATION
     Route: 048
  13. ZOFRAN [Concomitant]
  14. DEXAMETHASONE [Concomitant]

REACTIONS (3)
  - PULMONARY EMBOLISM [None]
  - DEEP VEIN THROMBOSIS [None]
  - NEOPLASM MALIGNANT [None]
